FAERS Safety Report 9365872 (Version 1)
Quarter: 2013Q2

REPORT INFORMATION
  Report Type: Spontaneous
  Country: US (occurrence: US)
  Receive Date: 20130625
  Receipt Date: 20130625
  Transmission Date: 20140414
  Serious: No
  Sender: FDA-Public Use
  Company Number: US-TEVA-414754USA

PATIENT
  Age: 63 Year
  Sex: Male
  Weight: 87.62 kg

DRUGS (3)
  1. NUVIGIL [Suspect]
     Route: 048
     Dates: start: 20130612, end: 20130613
  2. CELEBREX [Concomitant]
     Indication: ARTHRITIS
  3. EXFORGE [Concomitant]
     Indication: HYPERTENSION

REACTIONS (1)
  - Nausea [Recovered/Resolved]
